FAERS Safety Report 5893231-5 (Version None)
Quarter: 2008Q3

REPORT INFORMATION
  Report Type: 
  Country: None (occurrence: None)
  Receive Date: 20080923
  Receipt Date: 20080922
  Transmission Date: 20090109
  Serious: Yes (Other)
  Sender: FDA-Public Use
  Company Number: A0748548A

PATIENT
  Age: 29 Year
  Sex: Female
  Weight: 181.8 kg

DRUGS (4)
  1. ALLI [Suspect]
     Route: 048
     Dates: start: 20080808
  2. RELPAX [Concomitant]
  3. PRILOSEC [Concomitant]
  4. BUMEX [Concomitant]

REACTIONS (2)
  - INTESTINAL HAEMORRHAGE [None]
  - RECTAL HAEMORRHAGE [None]
